FAERS Safety Report 21179632 (Version 1)
Quarter: 2022Q3

REPORT INFORMATION
  Report Type: Report from Study
  Country: US (occurrence: None)
  Receive Date: 20220805
  Receipt Date: 20220805
  Transmission Date: 20221027
  Serious: Yes (Other)
  Sender: FDA-Public Use
  Company Number: US-Merck Healthcare KGaA-9337282

PATIENT
  Age: 57 Year
  Sex: Female

DRUGS (12)
  1. TEPMETKO [Suspect]
     Active Substance: TEPOTINIB HYDROCHLORIDE
     Indication: Product used for unknown indication
     Dosage: 225 MG TABLETS
     Dates: start: 20220621
  2. TEPMETKO [Suspect]
     Active Substance: TEPOTINIB HYDROCHLORIDE
     Dosage: 225 MG TABLETS
     Dates: start: 20220715
  3. TEPMETKO [Suspect]
     Active Substance: TEPOTINIB HYDROCHLORIDE
     Dosage: 225 MG TABLETS
  4. VITAMIN C [Concomitant]
     Active Substance: ASCORBIC ACID
     Indication: Product used for unknown indication
  5. ERGOCALCIFEROL [Concomitant]
     Active Substance: ERGOCALCIFEROL
     Indication: Product used for unknown indication
  6. FISH OIL [Concomitant]
     Active Substance: FISH OIL
     Indication: Product used for unknown indication
  7. VITAMIN B COMPLEX [Concomitant]
     Active Substance: CYANOCOBALAMIN\DEXPANTHENOL\NIACINAMIDE\PYRIDOXINE HYDROCHLORIDE\RIBOFLAVIN 5^-PHOSPHATE SODIUM\THIA
     Indication: Product used for unknown indication
  8. CALCIUM [Concomitant]
     Active Substance: CALCIUM
     Indication: Product used for unknown indication
  9. ONDANSETRON [Concomitant]
     Active Substance: ONDANSETRON
     Indication: Product used for unknown indication
  10. PROCHLORPERAZINE [Concomitant]
     Active Substance: PROCHLORPERAZINE
     Indication: Product used for unknown indication
  11. DICYCLOMINE [Concomitant]
     Active Substance: DICYCLOMINE HYDROCHLORIDE
     Indication: Product used for unknown indication
  12. OMEPRAZOLE [Concomitant]
     Active Substance: OMEPRAZOLE
     Indication: Product used for unknown indication

REACTIONS (16)
  - Pericardial effusion [Unknown]
  - Pain in extremity [Unknown]
  - Protein total decreased [Unknown]
  - Electrocardiogram abnormal [Unknown]
  - Vomiting [Unknown]
  - Nausea [Unknown]
  - Peripheral swelling [Unknown]
  - Constipation [Unknown]
  - Abdominal discomfort [Unknown]
  - Dizziness [Unknown]
  - Fatigue [Unknown]
  - Decreased appetite [Unknown]
  - Pruritus [Unknown]
  - Blood sodium decreased [Unknown]
  - Blood calcium decreased [Unknown]
  - Disease progression [Unknown]

NARRATIVE: CASE EVENT DATE: 20220624
